FAERS Safety Report 9537886 (Version 1)
Quarter: 2013Q3

REPORT INFORMATION
  Report Type: Report from Study
  Country: DE (occurrence: DE)
  Receive Date: 20130919
  Receipt Date: 20130919
  Transmission Date: 20140515
  Serious: Yes (Death, Hospitalization)
  Sender: FDA-Public Use
  Company Number: DE-ROCHE-1277383

PATIENT
  Age: 35 Year
  Sex: Female

DRUGS (1)
  1. PEG-INTERFERON ALFA 2A [Suspect]
     Indication: MALIGNANT MELANOMA
     Route: 065

REACTIONS (5)
  - Metastases to lung [Fatal]
  - Metastases to liver [Fatal]
  - Metastases to spleen [Fatal]
  - Metastases to central nervous system [Fatal]
  - Deep vein thrombosis [Recovered/Resolved]
